FAERS Safety Report 16588690 (Version 3)
Quarter: 2020Q1

REPORT INFORMATION
  Report Type: Other
  Country: DE (occurrence: DE)
  Receive Date: 20190718
  Receipt Date: 20200306
  Transmission Date: 20200409
  Serious: Yes (Hospitalization)
  Sender: FDA-Public Use
  Company Number: DE-CELLTRION INC.-2019DE022711

PATIENT

DRUGS (2)
  1. RITUXIMAB (UNKNOWN) [Suspect]
     Active Substance: RITUXIMAB
     Indication: RHEUMATOID ARTHRITIS
     Dosage: 1000 MG, LAST DOSE WAS ON 26/OCT/2018
     Route: 042
  2. METHOTREXATE. [Suspect]
     Active Substance: METHOTREXATE
     Indication: RHEUMATOID ARTHRITIS
     Dosage: 5 MG, 1 WEEK
     Route: 065
     Dates: start: 201903

REACTIONS (4)
  - Inflammation [Not Recovered/Not Resolved]
  - Synoviorthesis [Recovered/Resolved]
  - Alopecia [Not Recovered/Not Resolved]
  - Synoviorthesis [Not Recovered/Not Resolved]

NARRATIVE: CASE EVENT DATE: 20181004
